FAERS Safety Report 22010252 (Version 3)
Quarter: 2023Q2

REPORT INFORMATION
  Report Type: Spontaneous
  Country: JP (occurrence: JP)
  Receive Date: 20230220
  Receipt Date: 20230403
  Transmission Date: 20230722
  Serious: Yes (Hospitalization, Other)
  Sender: FDA-Public Use
  Company Number: JP-GLAXOSMITHKLINE-JP2023JPN023541

PATIENT

DRUGS (20)
  1. DAPRODUSTAT [Suspect]
     Active Substance: DAPRODUSTAT
     Indication: Nephrogenic anaemia
     Dosage: 2 MG, QD
     Dates: start: 20221112, end: 20230104
  2. EDIROL CAPSULE [Concomitant]
     Dosage: 0.75 ?G, QD
     Route: 048
  3. MIYA-BM [Concomitant]
     Active Substance: CLOSTRIDIUM BUTYRICUM SPORES STRAIN M-55
     Dosage: 1 DF, TID
     Route: 048
  4. BENIDIPINE HYDROCHLORIDE [Concomitant]
     Active Substance: BENIDIPINE HYDROCHLORIDE
     Dosage: 1 MG, QD
  5. TSUMURA SHAKUYAKUKANZOTO EXTRACT [Concomitant]
     Dosage: 2.5 G, QD
     Route: 048
  6. TARLIGE TABLETS [Concomitant]
     Dosage: 2.5 MG, QD
     Route: 048
  7. FELBINAC OINTMENT [Concomitant]
     Dosage: UNK UNK, QD
     Route: 061
  8. FELBINAC [Concomitant]
     Active Substance: FELBINAC
     Dosage: 2-3 TIMES PER DAY
     Route: 061
  9. CONIEL TABLETS (BENIDIPINE HYDROCHLORIDE) [Concomitant]
     Dosage: 4 MG, 1D
  10. GASMOTIN POWDER [Concomitant]
     Dosage: UNK UNK, TID
  11. HERBALS [Concomitant]
     Active Substance: HERBALS
     Dosage: UNK, QD
  12. EDOXABAN TOSYLATE [Concomitant]
     Active Substance: EDOXABAN TOSYLATE
     Indication: Thrombosis
     Dosage: 15 MG, 1D
     Dates: start: 20230111, end: 20230117
  13. EDOXABAN TOSYLATE [Concomitant]
     Active Substance: EDOXABAN TOSYLATE
     Dosage: 30 MG, QD
     Dates: start: 20230118
  14. LANSOPRAZOLE [Concomitant]
     Active Substance: LANSOPRAZOLE
     Dosage: 15 MG, QD
  15. AMLODIPINE BESYLATE [Concomitant]
     Active Substance: AMLODIPINE BESYLATE
     Indication: Hypertension
     Dosage: 5 MG, BID
     Dates: start: 20230107
  16. OLMESARTAN (OLMESARTAN MEDOXOMIL) [Concomitant]
     Dosage: 20 MG, QD
  17. SPIRONOLACTONE [Concomitant]
     Active Substance: SPIRONOLACTONE
     Dosage: 25 MG, QD
  18. AZOSEMIDE [Concomitant]
     Active Substance: AZOSEMIDE
     Dosage: 30 MG, QD
  19. CARVEDILOL [Concomitant]
     Active Substance: CARVEDILOL
     Dosage: 2.5 MG, QD
  20. ASPIRIN [Concomitant]
     Active Substance: ASPIRIN
     Indication: Thrombosis prophylaxis
     Dosage: UNK
     Dates: start: 20230105, end: 20230111

REACTIONS (21)
  - Cerebral infarction [Recovering/Resolving]
  - Embolic stroke [Recovering/Resolving]
  - Carotid artery occlusion [Recovering/Resolving]
  - Hemiplegia [Recovering/Resolving]
  - Altered state of consciousness [Recovering/Resolving]
  - Venous thrombosis limb [Unknown]
  - Asthenia [Recovering/Resolving]
  - Disorientation [Recovering/Resolving]
  - Language disorder [Recovering/Resolving]
  - Eye movement disorder [Unknown]
  - Bedridden [Recovering/Resolving]
  - Blood pressure increased [Unknown]
  - Cachexia [Unknown]
  - Pallor [Unknown]
  - Dermatitis [Unknown]
  - Aspiration [Recovering/Resolving]
  - Dysphagia [Recovering/Resolving]
  - Urinary tract infection [Unknown]
  - Staphylococcal infection [Unknown]
  - Blood sodium increased [Unknown]
  - Blood potassium decreased [Unknown]

NARRATIVE: CASE EVENT DATE: 20221220
